FAERS Safety Report 10301149 (Version 3)
Quarter: 2014Q3

REPORT INFORMATION
  Report Type: Spontaneous
  Country: FR (occurrence: FR)
  Receive Date: 20140714
  Receipt Date: 20140722
  Transmission Date: 20150326
  Serious: Yes (Other)
  Sender: FDA-Public Use
  Company Number: FR-PFIZER INC-2014192003

PATIENT
  Age: 68 Year
  Sex: Female

DRUGS (10)
  1. DEPAKINE CHRONO [Concomitant]
     Active Substance: VALPROATE SODIUM
     Dosage: UNK
  2. LEXOMIL [Concomitant]
     Active Substance: BROMAZEPAM
     Dosage: UNK
  3. TEGRETOL [Concomitant]
     Active Substance: CARBAMAZEPINE
     Dosage: UNK
  4. CORTANCYL [Concomitant]
     Active Substance: PREDNISONE
     Dosage: UNK
  5. GARDENAL [Concomitant]
     Active Substance: PHENOBARBITAL
     Dosage: UNK
  6. MORPHINE [Concomitant]
     Active Substance: MORPHINE
     Dosage: UNK
  7. LYRICA [Suspect]
     Active Substance: PREGABALIN
     Indication: EPILEPSY
     Dosage: 150 MG, 2X/DAY
  8. LASILIX [Concomitant]
     Active Substance: FUROSEMIDE
     Dosage: UNK
  9. PARACETAMOL [Concomitant]
     Active Substance: ACETAMINOPHEN
     Dosage: UNK
  10. TERCIAN [Concomitant]
     Active Substance: CYAMEMAZINE
     Dosage: UNK

REACTIONS (13)
  - Malaise [Unknown]
  - Weight decreased [Unknown]
  - Insomnia [Unknown]
  - Burning sensation [Not Recovered/Not Resolved]
  - Renal disorder [Unknown]
  - Diplopia [Not Recovered/Not Resolved]
  - Arthropathy [Unknown]
  - Incontinence [Unknown]
  - Musculoskeletal stiffness [Unknown]
  - Lung disorder [Unknown]
  - Oral discomfort [Unknown]
  - Delusional perception [Unknown]
  - Hot flush [Unknown]
